FAERS Safety Report 9118551 (Version 5)
Quarter: 2013Q2

REPORT INFORMATION
  Report Type: Spontaneous
  Country: JP (occurrence: JP)
  Receive Date: 20130226
  Receipt Date: 20130506
  Transmission Date: 20140414
  Serious: Yes (Other)
  Sender: FDA-Public Use
  Company Number: JP-AMGEN-JPNSP2013012776

PATIENT
  Age: 64 Year
  Sex: Male

DRUGS (21)
  1. MIMPARA [Suspect]
     Indication: HYPERPARATHYROIDISM SECONDARY
     Dosage: 25 MG, QD
     Route: 048
     Dates: start: 201212
  2. MIMPARA [Suspect]
     Dosage: 50 MG, QD
     Route: 048
  3. MIMPARA [Suspect]
     Dosage: 75 MG, QD
     Route: 048
     Dates: start: 201301
  4. LANSOPRAZOLE [Concomitant]
     Indication: GASTRIC ULCER
     Dosage: UNK
     Route: 048
  5. FOSRENOL [Concomitant]
     Indication: HYPERPHOSPHATAEMIA
     Dosage: 250 MG, QD,
     Route: 048
     Dates: start: 201207, end: 20130205
  6. FOSRENOL [Concomitant]
     Dosage: 250 MG, QD, ROUTE:GASTRIC FISTULA
     Route: 050
  7. FAMOTIDINE [Concomitant]
     Indication: GASTROOESOPHAGEAL REFLUX DISEASE
     Dosage: 10 MG, QD
     Route: 048
     Dates: start: 2006, end: 20130205
  8. FAMOTIDINE [Concomitant]
     Dosage: 10 MG, QD, ROUTE:GASTRIC FISTULA
     Route: 050
  9. PLAVIX [Concomitant]
     Indication: CEREBRAL INFARCTION
     Dosage: 75 MG, QD
     Route: 048
     Dates: start: 201211
  10. PLAVIX [Concomitant]
     Dosage: 75 MG, QD, ROUTE:GASTRIC FISTULA
     Route: 050
  11. ASPARA K [Concomitant]
     Indication: HYPOKALAEMIA
     Dosage: 600 MG, QD
     Route: 048
     Dates: start: 201212
  12. ASPARA K [Concomitant]
     Dosage: 600 MG, QD, ROUTE:GASTRIC FISTULA
     Route: 050
  13. RISUMIC [Concomitant]
     Indication: PROCEDURAL HYPOTENSION
     Dosage: 10 MG, UNK
     Dates: start: 201205
  14. RISUMIC [Concomitant]
     Dosage: 10 MG, DIALYSIS DAY, ROUTE:GASTRIC FISTULA
     Route: 050
  15. IMIDAPRIL HYDROCHLORIDE [Concomitant]
     Indication: PNEUMONIA ASPIRATION
     Dosage: 5 MG, QD
     Route: 048
     Dates: start: 201301
  16. IMIDAPRIL HYDROCHLORIDE [Concomitant]
     Dosage: 5 MG, QD, ROUTE:GASTRIC FISTULA
     Route: 050
  17. FEBURIC [Concomitant]
     Dosage: 10 MG, QD
     Route: 048
     Dates: start: 201207, end: 20130122
  18. FEBURIC [Concomitant]
     Dosage: 10 MG, QD, ROUTE:GASTRIC FISTULA
     Route: 050
  19. OXAROL [Concomitant]
     Indication: HYPERPARATHYROIDISM SECONDARY
     Dosage: 5 MUG, UNK
     Route: 042
     Dates: start: 20120120
  20. OXAROL [Concomitant]
     Dosage: 5 MUG, UNK
  21. OXAROL [Concomitant]
     Dosage: 5 MUG, DIALYSIS DAY, ROUTE:GASTRIC FISTULA

REACTIONS (4)
  - Haematemesis [Recovered/Resolved]
  - Hiatus hernia [Unknown]
  - Gastric polyps [Unknown]
  - Gastritis erosive [Recovering/Resolving]
